FAERS Safety Report 9434764 (Version 1)
Quarter: 2013Q3

REPORT INFORMATION
  Report Type: Spontaneous
  Country: LB (occurrence: LB)
  Receive Date: 20130801
  Receipt Date: 20130801
  Transmission Date: 20140515
  Serious: Yes (Other)
  Sender: FDA-Public Use
  Company Number: LB-PFIZER INC-2013222720

PATIENT
  Sex: Male

DRUGS (2)
  1. PANTOZOL [Suspect]
     Indication: GASTROOESOPHAGEAL REFLUX DISEASE
     Dosage: UNK
     Route: 065
  2. PYLERA [Suspect]
     Dosage: UNK
     Route: 065

REACTIONS (1)
  - Penile necrosis [Not Recovered/Not Resolved]
